FAERS Safety Report 4468913-2 (Version None)
Quarter: 2004Q4

REPORT INFORMATION
  Report Type: 
  Country: None (occurrence: None)
  Receive Date: 20041005
  Receipt Date: 20040922
  Transmission Date: 20050328
  Serious: Yes (Hospitalization)
  Sender: FDA-Public Use
  Company Number: A04200400882

PATIENT

DRUGS (1)
  1. ELOXATIN [Suspect]
     Route: 041
     Dates: start: 20040101, end: 20040101

REACTIONS (3)
  - ADVERSE DRUG REACTION [None]
  - NEUROPATHY [None]
  - SYNCOPE [None]
